FAERS Safety Report 5699298-1 (Version None)
Quarter: 2008Q2

REPORT INFORMATION
  Report Type: 
  Country: None (occurrence: None)
  Receive Date: 20080404
  Receipt Date: 20080327
  Transmission Date: 20081010
  Serious: Yes (Other)
  Sender: FDA-Public Use
  Company Number: 08032449

PATIENT
  Age: 53 Year
  Sex: Female

DRUGS (4)
  1. TRIPLE ANTIBIOTIC OINTMENT [Suspect]
     Indication: EXCORIATION
     Dosage: 1 APP, ONCE, ORAL
     Route: 048
     Dates: start: 20080323, end: 20080323
  2. METOPROLOL TARTRATE [Concomitant]
  3. LIPITOR [Concomitant]
  4. PROTONIX [Concomitant]

REACTIONS (1)
  - HYPERSENSITIVITY [None]
